FAERS Safety Report 7970518-3 (Version None)
Quarter: 2011Q4

REPORT INFORMATION
  Report Type: 
  Country: None (occurrence: None)
  Receive Date: 20111212
  Receipt Date: 20111201
  Transmission Date: 20120403
  Serious: Yes (Hospitalization)
  Sender: FDA-Public Use
  Company Number: US-JNJFOC-20111201681

PATIENT
  Sex: Female
  Weight: 77.11 kg

DRUGS (3)
  1. REMICADE [Suspect]
     Indication: PSORIATIC ARTHROPATHY
     Route: 042
     Dates: end: 20100101
  2. REMICADE [Suspect]
     Route: 042
  3. REMICADE [Suspect]
     Route: 042
     Dates: start: 20100101

REACTIONS (4)
  - URINARY TRACT INFECTION [None]
  - TREMOR [None]
  - PAIN [None]
  - MALAISE [None]
